FAERS Safety Report 8295492-4 (Version None)
Quarter: 2012Q2

REPORT INFORMATION
  Report Type: 
  Country: None (occurrence: None)
  Receive Date: 20120418
  Receipt Date: 20120410
  Transmission Date: 20120825
  Serious: No
  Sender: FDA-Public Use
  Company Number: US-JNJFOC-20120308004

PATIENT
  Sex: Female
  Weight: 67.59 kg

DRUGS (7)
  1. LEVOTHYROXINE SODIUM [Concomitant]
  2. XARELTO [Suspect]
     Indication: THROMBOSIS PROPHYLAXIS
     Route: 048
  3. LISINOPRIL [Concomitant]
  4. XARELTO [Suspect]
     Indication: KNEE OPERATION
     Route: 048
  5. LANTUS [Concomitant]
  6. GLUCOPHAGE [Concomitant]
  7. NOVOLOG [Concomitant]

REACTIONS (1)
  - RASH [None]
